FAERS Safety Report 13131957 (Version 3)
Quarter: 2020Q2

REPORT INFORMATION
  Report Type: Spontaneous
  Country: US (occurrence: US)
  Receive Date: 20170119
  Receipt Date: 20200415
  Transmission Date: 20200713
  Serious: No
  Sender: FDA-Public Use
  Company Number: US-LUNDBECK-DKLU2024505

PATIENT
  Age: 53 Year
  Sex: Male

DRUGS (8)
  1. NORTHERA [Suspect]
     Active Substance: DROXIDOPA
     Route: 065
  2. NORTHERA [Suspect]
     Active Substance: DROXIDOPA
     Indication: ORTHOSTATIC HYPOTENSION
     Route: 065
     Dates: start: 201612
  3. NORTHERA [Suspect]
     Active Substance: DROXIDOPA
     Route: 065
  4. NORTHERA [Suspect]
     Active Substance: DROXIDOPA
     Route: 065
  5. NORTHERA [Suspect]
     Active Substance: DROXIDOPA
     Indication: AUTONOMIC NEUROPATHY
     Dosage: TITRATION SCHEDULE A
     Route: 065
     Dates: start: 20161209
  6. NORTHERA [Suspect]
     Active Substance: DROXIDOPA
     Route: 065
  7. NORTHERA [Suspect]
     Active Substance: DROXIDOPA
     Route: 065
  8. NORTHERA [Suspect]
     Active Substance: DROXIDOPA
     Route: 065

REACTIONS (3)
  - Drug intolerance [Unknown]
  - Fall [Unknown]
  - Dizziness [Unknown]

NARRATIVE: CASE EVENT DATE: 201612
